FAERS Safety Report 19939348 (Version 5)
Quarter: 2021Q4

REPORT INFORMATION
  Report Type: Report from Study
  Country: US (occurrence: US)
  Receive Date: 20211011
  Receipt Date: 20211108
  Transmission Date: 20220304
  Serious: No
  Sender: FDA-Public Use
  Company Number: NVSC2021US231739

PATIENT
  Sex: Female
  Weight: 75.283 kg

DRUGS (5)
  1. TREPROSTINIL [Suspect]
     Active Substance: TREPROSTINIL
     Indication: Pulmonary arterial hypertension
     Dosage: 8 UNK, CONT (NG/KG/MIN)
     Route: 058
     Dates: start: 20210922
  2. TREPROSTINIL [Suspect]
     Active Substance: TREPROSTINIL
     Dosage: 17 UNK, CONT (NG/KG/MIN)
     Route: 058
     Dates: start: 20210922
  3. TREPROSTINIL [Suspect]
     Active Substance: TREPROSTINIL
     Dosage: UNK
     Route: 065
  4. TADALAFIL [Concomitant]
     Active Substance: TADALAFIL
     Indication: Product used for unknown indication
     Dosage: UNK
     Route: 065
  5. REMODULIN [Concomitant]
     Active Substance: TREPROSTINIL
     Indication: Product used for unknown indication
     Dosage: UNK
     Route: 065

REACTIONS (11)
  - Depressed mood [Unknown]
  - Fatigue [Unknown]
  - Depression [Unknown]
  - Abdominal pain upper [Unknown]
  - Dyspnoea [Unknown]
  - Malaise [Unknown]
  - Oxygen consumption increased [Unknown]
  - Nausea [Unknown]
  - Headache [Unknown]
  - Asthenia [Unknown]
  - Dizziness [Unknown]
